FAERS Safety Report 8143288-6 (Version None)
Quarter: 2012Q1

REPORT INFORMATION
  Report Type: 
  Country: None (occurrence: None)
  Receive Date: 20120217
  Receipt Date: 20120210
  Transmission Date: 20120608
  Serious: Yes (Hospitalization)
  Sender: FDA-Public Use
  Company Number: US-BAYER-2011-074980

PATIENT
  Age: 39 Year
  Sex: Female
  Weight: 48.526 kg

DRUGS (9)
  1. ATIVAN [Concomitant]
     Indication: CONVULSION
  2. LIPITOR [Concomitant]
  3. ACETAMINOPHEN [Concomitant]
  4. YAZ [Suspect]
     Indication: CONTRACEPTION
     Dosage: UNK
     Dates: start: 20090220, end: 20100101
  5. LEXAPRO [Concomitant]
  6. COLACE [Concomitant]
  7. KEPPRA [Concomitant]
  8. ASPIRIN [Concomitant]
  9. PROTONIX [Concomitant]

REACTIONS (2)
  - INJURY [None]
  - CEREBROVASCULAR ACCIDENT [None]
